FAERS Safety Report 5129053-2 (Version None)
Quarter: 2006Q4

REPORT INFORMATION
  Report Type: 
  Country: None (occurrence: None)
  Receive Date: 20061011
  Receipt Date: 20060828
  Transmission Date: 20070319
  Serious: Yes (Hospitalization, Other)
  Sender: FDA-Public Use
  Company Number: 2006077685

PATIENT
  Age: 56 Year
  Sex: Male
  Weight: 84.369 kg

DRUGS (4)
  1. BEXTRA [Suspect]
     Indication: INTERVERTEBRAL DISC PROTRUSION
     Dosage: 40 MG (20 MG, 2 IN 1 D), ORAL
     Route: 048
     Dates: start: 20030107
  2. VALTREX [Concomitant]
  3. ACETAMINOPHEN [Concomitant]
  4. AEROBID [Concomitant]

REACTIONS (3)
  - DYSPHAGIA [None]
  - ERYTHEMA MULTIFORME [None]
  - STEVENS-JOHNSON SYNDROME [None]
